FAERS Safety Report 11276779 (Version 1)
Quarter: 2015Q3

REPORT INFORMATION
  Report Type: Spontaneous
  Country: FR (occurrence: FR)
  Receive Date: 20150716
  Receipt Date: 20150716
  Transmission Date: 20151125
  Serious: Yes (Other)
  Sender: FDA-Public Use
  Company Number: FR-PFIZER INC-2015232099

PATIENT
  Age: 52 Year
  Sex: Male

DRUGS (9)
  1. VANCOMYCIN [Suspect]
     Active Substance: VANCOMYCIN
     Indication: FEBRILE BONE MARROW APLASIA
     Dosage: 500 MG, DAILY
     Route: 042
     Dates: start: 20150608, end: 20150610
  2. ROVAMYCINE [Suspect]
     Active Substance: SPIRAMYCIN
     Indication: FEBRILE BONE MARROW APLASIA
     Dosage: 1.5 MILLION IU, 3X/DAY
     Route: 042
     Dates: start: 20150607, end: 20150616
  3. ZOVIRAX [Suspect]
     Active Substance: ACYCLOVIR
     Indication: STOMATITIS
     Dosage: 5 MG/KG, DAILY
     Route: 042
     Dates: start: 20150610
  4. ZYVOXID [Suspect]
     Active Substance: LINEZOLID
     Indication: FEBRILE BONE MARROW APLASIA
     Dosage: 600 MG, DAILY
     Route: 042
     Dates: start: 20150610, end: 20150617
  5. CANCIDAS [Suspect]
     Active Substance: CASPOFUNGIN ACETATE
     Indication: FEBRILE BONE MARROW APLASIA
     Dosage: 70 MG, DAILY
     Route: 042
     Dates: start: 20150610, end: 20150617
  6. TIENAM [Suspect]
     Active Substance: CILASTATIN SODIUM\IMIPENEM
     Indication: FEBRILE BONE MARROW APLASIA
     Dosage: 500 MG, 3X/DAY
     Route: 042
     Dates: start: 20150610, end: 20150617
  7. ZOVIRAX [Suspect]
     Active Substance: ACYCLOVIR
     Indication: STOMATITIS
     Dosage: 50 MG, 2X/DAY
     Route: 048
  8. TAZOCILLINE [Suspect]
     Active Substance: PIPERACILLIN SODIUM\TAZOBACTAM SODIUM
     Indication: FEBRILE BONE MARROW APLASIA
     Dosage: 1 G, 4X/DAY
     Route: 042
     Dates: start: 20150602, end: 20150610
  9. ROVAMYCINE [Suspect]
     Active Substance: SPIRAMYCIN
     Indication: LUNG DISORDER

REACTIONS (2)
  - Punctate keratitis [Recovered/Resolved]
  - Rash maculo-papular [Recovered/Resolved]

NARRATIVE: CASE EVENT DATE: 20150615
